FAERS Safety Report 6209633-3 (Version None)
Quarter: 2009Q2

REPORT INFORMATION
  Report Type: 
  Country: None (occurrence: None)
  Receive Date: 20090601
  Receipt Date: 20090528
  Transmission Date: 20091009
  Serious: No
  Sender: FDA-Public Use
  Company Number: US-B.I. PHARMACEUTICALS,INC./RIDGEFIELD-2009-BP-04725BP

PATIENT
  Sex: Male

DRUGS (7)
  1. SPIRIVA [Suspect]
     Indication: PULMONARY FIBROSIS
     Dosage: 18MCG
     Route: 055
  2. ADVAIR HFA [Concomitant]
  3. CELLCEPT [Concomitant]
  4. COUMADIN [Concomitant]
  5. ACETYLCYSTEINE [Concomitant]
  6. BACTRIM [Concomitant]
  7. OXYGEN [Concomitant]

REACTIONS (1)
  - DYSPNOEA [None]
